FAERS Safety Report 9582588 (Version 1)
Quarter: 2013Q4

REPORT INFORMATION
  Report Type: Spontaneous
  Country: US (occurrence: US)
  Receive Date: 20131002
  Receipt Date: 20131002
  Transmission Date: 20140711
  Serious: No
  Sender: FDA-Public Use
  Company Number: US-AMGEN-USASP2013041513

PATIENT
  Age: 54 Year
  Sex: Female
  Weight: 108.84 kg

DRUGS (8)
  1. ENBREL [Suspect]
     Indication: PRODUCT USED FOR UNKNOWN INDICATION
     Dosage: 50 MG, 2 TIMES/WK
     Route: 058
  2. CLARINEX-D [Concomitant]
     Dosage: 2.5-120
  3. METFORMIN [Concomitant]
     Dosage: 1000 MG, UNK
  4. VITAMIN B12                        /00056201/ [Concomitant]
     Dosage: 100 MUG, UNK
  5. OMEGA 3                            /01334101/ [Concomitant]
     Dosage: 1200 MG, UNK
  6. CALCIUM [Concomitant]
     Dosage: 500 UNK, UNK
  7. VITAMIN C                          /00008001/ [Concomitant]
     Dosage: 500 MG, UNK
  8. LEVOTHYROXIN [Concomitant]
     Dosage: 500 MUG, UNK

REACTIONS (2)
  - Drug ineffective [Unknown]
  - Injection site pain [Recovered/Resolved]
